FAERS Safety Report 16673634 (Version 3)
Quarter: 2021Q2

REPORT INFORMATION
  Report Type: Spontaneous
  Country: FR (occurrence: FR)
  Receive Date: 20190806
  Receipt Date: 20210515
  Transmission Date: 20210716
  Serious: Yes (Hospitalization, Other)
  Sender: FDA-Public Use
  Company Number: PHHY2019FR178264

PATIENT
  Age: 26 Year
  Sex: Male

DRUGS (6)
  1. LAMPRENE [Suspect]
     Active Substance: CLOFAZIMINE
     Dosage: 100 UG, QD
     Route: 048
  2. IMUKIN [Suspect]
     Active Substance: INTERFERON GAMMA
     Indication: IMMUNODEFICIENCY
     Dosage: 100 UG, Q3W (EVERY 3 WEEKS)
     Route: 058
     Dates: start: 20190524, end: 20190603
  3. AZITHROMYCIN ANHYDROUS. [Suspect]
     Active Substance: AZITHROMYCIN ANHYDROUS
     Dosage: 500 MG, QD
     Route: 048
  4. LAMPRENE [Suspect]
     Active Substance: CLOFAZIMINE
     Indication: MYCOBACTERIUM ABSCESSUS INFECTION
     Dosage: 100 UG, QD
     Route: 048
     Dates: start: 20190524
  5. AZITHROMYCIN ANHYDROUS. [Suspect]
     Active Substance: AZITHROMYCIN ANHYDROUS
     Indication: MYCOBACTERIUM ABSCESSUS INFECTION
     Dosage: 500 MG, QD
     Route: 048
     Dates: start: 20190524
  6. VIMPAT [Suspect]
     Active Substance: LACOSAMIDE
     Indication: EPILEPSY
     Dosage: 200 MG, QD
     Route: 065
     Dates: start: 201905

REACTIONS (3)
  - Agranulocytosis [Recovered/Resolved]
  - Off label use [Unknown]
  - Neutropenia [Recovering/Resolving]

NARRATIVE: CASE EVENT DATE: 20190524
